FAERS Safety Report 10232764 (Version 1)
Quarter: 2014Q2

REPORT INFORMATION
  Report Type: Spontaneous
  Country: US (occurrence: US)
  Receive Date: 20140612
  Receipt Date: 20140612
  Transmission Date: 20141212
  Serious: Yes (Death)
  Sender: FDA-Public Use
  Company Number: US-ASTELLAS-2014US006654

PATIENT
  Age: 74 Year
  Sex: Female

DRUGS (1)
  1. PROTOPIC [Suspect]
     Indication: PSORIASIS
     Dosage: UNK UNK, TWICE DAILY
     Route: 061
     Dates: start: 20140503, end: 20140523

REACTIONS (2)
  - Death [Fatal]
  - Off label use [Unknown]
